FAERS Safety Report 5106396-X (Version None)
Quarter: 2006Q3

REPORT INFORMATION
  Report Type: 
  Country: None (occurrence: None)
  Receive Date: 20060918
  Receipt Date: 20060912
  Transmission Date: 20061208
  Serious: Yes (Congenital Anomaly)
  Sender: FDA-Public Use
  Company Number: DE-AVENTIS-200612672DE

PATIENT
  Sex: Female
  Weight: 3.91 kg

DRUGS (9)
  1. CLEXANE [Suspect]
     Indication: VARICOSE VEIN
     Route: 064
     Dates: end: 20060401
  2. CLEXANE [Suspect]
     Route: 064
     Dates: start: 20060401, end: 20060701
  3. CLEXANE [Suspect]
     Indication: THROMBOPHLEBITIS
     Route: 064
     Dates: end: 20060401
  4. CLEXANE [Suspect]
     Route: 064
     Dates: start: 20060401, end: 20060701
  5. FERRO SANOL [Concomitant]
     Indication: IRON DEFICIENCY
     Route: 064
  6. MAGNESIUM VERLA [Concomitant]
     Indication: PREMATURE LABOUR
     Route: 064
  7. JODETTEN [Concomitant]
     Indication: PREGNANCY
     Route: 064
  8. MULTIVITAMINS WITH MINERALS [Concomitant]
     Indication: PREGNANCY
     Route: 064
     Dates: start: 20051001
  9. CETEBE [Concomitant]
     Route: 064
     Dates: start: 20051001

REACTIONS (4)
  - ATRIAL SEPTAL DEFECT [None]
  - CAESAREAN SECTION [None]
  - DRUG EXPOSURE DURING PREGNANCY [None]
  - HEART SOUNDS ABNORMAL [None]
